FAERS Safety Report 18912872 (Version 2)
Quarter: 2021Q1

REPORT INFORMATION
  Report Type: Spontaneous
  Country: US (occurrence: US)
  Receive Date: 20210218
  Receipt Date: 20210309
  Transmission Date: 20210420
  Serious: Yes (Other)
  Sender: FDA-Public Use
  Company Number: US-ASTRAZENECA-2021A044109

PATIENT
  Age: 78 Year
  Sex: Male

DRUGS (5)
  1. XTANDI [Suspect]
     Active Substance: ENZALUTAMIDE
     Indication: PROSTATE CANCER
     Route: 048
     Dates: start: 20180919
  2. SYMBICORT [Suspect]
     Active Substance: BUDESONIDE\FORMOTEROL FUMARATE DIHYDRATE
     Indication: PRODUCT USED FOR UNKNOWN INDICATION
     Dosage: UNKNOWN UNKNOWN
     Route: 055
  3. XTANDI [Suspect]
     Active Substance: ENZALUTAMIDE
     Indication: PROSTATE CANCER
     Route: 048
     Dates: start: 20201104
  4. ABIRATERONE. [Suspect]
     Active Substance: ABIRATERONE ACETATE
     Indication: PRODUCT USED FOR UNKNOWN INDICATION
     Route: 065
  5. LUPRON [Suspect]
     Active Substance: LEUPROLIDE ACETATE
     Indication: PRODUCT USED FOR UNKNOWN INDICATION
     Dosage: UNKNOWN
     Route: 065

REACTIONS (21)
  - Prostatic specific antigen increased [Not Recovered/Not Resolved]
  - Dementia Alzheimer^s type [Unknown]
  - Malignant neoplasm progression [Unknown]
  - Hot flush [Unknown]
  - Feeling jittery [Unknown]
  - Bone pain [Unknown]
  - Chronic obstructive pulmonary disease [Unknown]
  - Illness [Unknown]
  - Sleep disorder [Unknown]
  - Bone cancer [Unknown]
  - Anxiety [Recovering/Resolving]
  - Insomnia [Unknown]
  - Vision blurred [Unknown]
  - Fatigue [Unknown]
  - Bladder disorder [Unknown]
  - Lacrimation increased [Unknown]
  - Renal disorder [Unknown]
  - Limb injury [Unknown]
  - Fall [Unknown]
  - Erythema [Unknown]
  - Tremor [Recovering/Resolving]
